FAERS Safety Report 7026889-8 (Version None)
Quarter: 2010Q4

REPORT INFORMATION
  Report Type: 
  Country: None (occurrence: None)
  Receive Date: 20101004
  Receipt Date: 20100928
  Transmission Date: 20110411
  Serious: Yes (Death, Life-Threatening, Hospitalization, Disabling, Other)
  Sender: FDA-Public Use
  Company Number: A0879651A

PATIENT
  Age: 79 Year
  Sex: Male
  Weight: 81.8 kg

DRUGS (11)
  1. MELPHALAN HYDROCHLORIDE [Suspect]
     Indication: MULTIPLE MYELOMA
     Dosage: 16MG PER DAY
     Route: 048
     Dates: start: 20100412, end: 20100415
  2. PREDNISONE [Suspect]
     Indication: MULTIPLE MYELOMA
     Route: 048
     Dates: start: 20100301, end: 20100415
  3. VELCADE [Suspect]
     Indication: MULTIPLE MYELOMA
     Dosage: 2MG WEEKLY
     Route: 042
     Dates: start: 20100301, end: 20100412
  4. ASPIRIN [Concomitant]
     Dosage: 81MG PER DAY
     Route: 048
  5. DILTIAZEM [Concomitant]
     Dosage: 180MG TWICE PER DAY
  6. KADIAN [Concomitant]
     Dosage: 20MG PER DAY
  7. LASIX [Concomitant]
     Dosage: 20MG PER DAY
  8. LEXAPRO [Concomitant]
     Dosage: 20MG PER DAY
     Route: 048
  9. OMEPRAZOLE [Concomitant]
     Dosage: 40MG PER DAY
     Route: 048
  10. PERCOCET [Concomitant]
     Dosage: 325MG AS REQUIRED
  11. POTASSIUM CHLORIDE [Concomitant]
     Dosage: 10MG PER DAY
     Route: 048

REACTIONS (8)
  - ASTHENIA [None]
  - BLOOD CREATININE INCREASED [None]
  - CLOSTRIDIUM TEST POSITIVE [None]
  - DEATH [None]
  - DEHYDRATION [None]
  - HYPOTENSION [None]
  - RENAL FAILURE ACUTE [None]
  - SEPSIS [None]
